FAERS Safety Report 4952202-3 (Version None)
Quarter: 2006Q1

REPORT INFORMATION
  Report Type: 
  Country: None (occurrence: None)
  Receive Date: 20060317
  Receipt Date: 20060301
  Transmission Date: 20060701
  Serious: Yes (Hospitalization)
  Sender: FDA-Public Use
  Company Number: 222102

PATIENT
  Age: 63 Year
  Sex: Male

DRUGS (8)
  1. AVASTIN [Suspect]
     Indication: COLORECTAL CANCER
     Dosage: SEE IMAGE
     Route: 042
     Dates: start: 20050928
  2. AVASTIN [Suspect]
     Indication: COLORECTAL CANCER
     Dosage: SEE IMAGE
     Route: 042
     Dates: start: 20060108
  3. AVASTIN [Suspect]
  4. CIPRAMIL (CITALOPRAM) [Concomitant]
  5. WARFARIN SODIUM [Concomitant]
  6. DIHYDROXYALUMINUM AMINOACETATE (DIHYDROXYALUMINUM AMINOACETATE) [Concomitant]
  7. GRANISETRON (GRANISETRON HYDROCHLORIDE) [Concomitant]
  8. METOCLOPRAMIDE (METOCLOPRAMIDE HYDROCHLORIDE) [Concomitant]

REACTIONS (5)
  - BLOOD CREATININE INCREASED [None]
  - C-REACTIVE PROTEIN INCREASED [None]
  - CENTRAL LINE INFECTION [None]
  - HAEMOGLOBIN DECREASED [None]
  - PLATELET COUNT DECREASED [None]
